FAERS Safety Report 7432896-3 (Version None)
Quarter: 2011Q2

REPORT INFORMATION
  Report Type: 
  Country: None (occurrence: None)
  Receive Date: 20110422
  Receipt Date: 20110412
  Transmission Date: 20111010
  Serious: Yes (Hospitalization)
  Sender: FDA-Public Use
  Company Number: NL-MEDIMMUNE-MEDI-0013068

PATIENT
  Sex: Male
  Weight: 7.24 kg

DRUGS (3)
  1. SYNAGIS [Suspect]
     Route: 030
     Dates: start: 20110407, end: 20110407
  2. SYNAGIS [Suspect]
     Route: 030
     Dates: start: 20101219, end: 20101219
  3. SYNAGIS [Suspect]
     Route: 030
     Dates: start: 20110310, end: 20110310

REACTIONS (5)
  - RHINOVIRUS INFECTION [None]
  - DYSPNOEA [None]
  - COUGH [None]
  - INFANTILE SPITTING UP [None]
  - NASOPHARYNGITIS [None]
